FAERS Safety Report 18238048 (Version 4)
Quarter: 2020Q4

REPORT INFORMATION
  Report Type: Spontaneous
  Country: US (occurrence: US)
  Receive Date: 20200907
  Receipt Date: 20201110
  Transmission Date: 20210113
  Serious: No
  Sender: FDA-Public Use
  Company Number: US-PFIZER INC-2020337644

PATIENT
  Age: 36 Year
  Sex: Male
  Weight: 104.33 kg

DRUGS (1)
  1. GENOTROPIN [Suspect]
     Active Substance: SOMATROPIN
     Indication: HYPOPITUITARISM
     Dosage: 1 MG, DAILY

REACTIONS (6)
  - Expired device used [Unknown]
  - Product quality issue [Unknown]
  - Device issue [Unknown]
  - Product dose omission issue [Unknown]
  - Device use issue [Unknown]
  - Device information output issue [Unknown]

NARRATIVE: CASE EVENT DATE: 2020
